FAERS Safety Report 17429011 (Version 1)
Quarter: 2020Q1

REPORT INFORMATION
  Report Type: Spontaneous
  Country: US (occurrence: US)
  Receive Date: 20200214
  Receipt Date: 20200214
  Transmission Date: 20200409
  Serious: No
  Sender: FDA-Public Use
  Company Number: None

PATIENT
  Age: 35 Year
  Sex: Male
  Weight: 126 kg

DRUGS (4)
  1. LIPITOR [Concomitant]
     Active Substance: ATORVASTATIN CALCIUM
  2. ADDERALL [Concomitant]
     Active Substance: AMPHETAMINE ASPARTATE\AMPHETAMINE SULFATE\DEXTROAMPHETAMINE SACCHARATE\DEXTROAMPHETAMINE SULFATE
  3. VENLAFAXINE [Suspect]
     Active Substance: VENLAFAXINE HYDROCHLORIDE
     Indication: ANXIETY
     Dosage: ?          QUANTITY:1 TABLET(S);?
     Route: 048
     Dates: start: 20200208, end: 20200212
  4. CLONADINE [Concomitant]

REACTIONS (14)
  - Myalgia [None]
  - Bruxism [None]
  - Confusional state [None]
  - Tension headache [None]
  - Neuralgia [None]
  - Sleep disorder [None]
  - Pain in extremity [None]
  - Dry mouth [None]
  - Feeling abnormal [None]
  - Irritability [None]
  - Product complaint [None]
  - Palpitations [None]
  - Arthralgia [None]
  - Crying [None]

NARRATIVE: CASE EVENT DATE: 20200212
